FAERS Safety Report 22115067 (Version 3)
Quarter: 2023Q1

REPORT INFORMATION
  Report Type: Spontaneous
  Country: US (occurrence: US)
  Receive Date: 20230320
  Receipt Date: 20230322
  Transmission Date: 20230417
  Serious: Yes (Hospitalization, Other)
  Sender: FDA-Public Use
  Company Number: US-SA-SAC20230316000345

PATIENT
  Age: 82 Year
  Sex: Female

DRUGS (1)
  1. AUBAGIO [Suspect]
     Active Substance: TERIFLUNOMIDE
     Indication: Multiple sclerosis
     Dosage: 7 MG, QD
     Route: 048
     Dates: start: 201906

REACTIONS (3)
  - Seizure [Unknown]
  - Multiple sclerosis relapse [Unknown]
  - Intracranial mass [Unknown]

NARRATIVE: CASE EVENT DATE: 20230201
